FAERS Safety Report 5664425-9 (Version None)
Quarter: 2008Q1

REPORT INFORMATION
  Report Type: 
  Country: None (occurrence: None)
  Receive Date: 20080312
  Receipt Date: 20080227
  Transmission Date: 20080703
  Serious: Yes (Death)
  Sender: FDA-Public Use
  Company Number: 2008030052

PATIENT
  Age: 92 Year
  Sex: Female

DRUGS (7)
  1. INTRALIPID 20% [Suspect]
     Indication: PARENTERAL NUTRITION
     Dosage: 1200 ML
     Dates: start: 20071229, end: 20080226
  2. HICALIQ (HICALIQ) (HICALIQ) [Concomitant]
  3. NEOAMIYU (AMINO ACIDS) (AMINO ACIDS) [Concomitant]
  4. PARESAFE (TPN) (TPN) [Concomitant]
  5. MV (MV) (MV) [Concomitant]
  6. HUMULIN R (INSULIN HUMAN) (INSULIN HUMAN) [Concomitant]
  7. ZYVOX (LINEZOLID) (LINEZOLID) [Concomitant]

REACTIONS (1)
  - DEEP VEIN THROMBOSIS [None]
